FAERS Safety Report 17422762 (Version 1)
Quarter: 2020Q1

REPORT INFORMATION
  Report Type: Spontaneous
  Country: IT (occurrence: IT)
  Receive Date: 20200215
  Receipt Date: 20200215
  Transmission Date: 20200409
  Serious: Yes (Other)
  Sender: FDA-Public Use
  Company Number: IT-VISTAPHARM, INC.-VER202002-000301

PATIENT
  Age: 49 Year
  Sex: Male

DRUGS (1)
  1. METHADONE [Suspect]
     Active Substance: METHADONE HYDROCHLORIDE
     Indication: SUICIDE ATTEMPT
     Dosage: UNKNOWN
     Route: 042

REACTIONS (2)
  - Toxicity to various agents [Recovered/Resolved]
  - Leukoencephalopathy [Recovered/Resolved]
